FAERS Safety Report 9053810 (Version 1)
Quarter: 2013Q1

REPORT INFORMATION
  Report Type: Spontaneous
  Country: US (occurrence: None)
  Receive Date: 20130201
  Receipt Date: 20130201
  Transmission Date: 20140127
  Serious: No
  Sender: FDA-Public Use
  Company Number: None

PATIENT
  Age: 9 Month
  Sex: Female
  Weight: 6.8 kg

DRUGS (1)
  1. BELLADONNA ALKALOIDS\CALCIUM PHOSPHATE\CAMOMILE EXTRACT\COFFEE BEAN [Suspect]
     Dosage: 3 AT A TIME ONCE OR TWICE A DAY
     Dates: start: 20121001, end: 20130131

REACTIONS (9)
  - Rash [None]
  - Urticaria [None]
  - Hypersensitivity [None]
  - Constipation [None]
  - Screaming [None]
  - Crying [None]
  - Dehydration [None]
  - Erythema [None]
  - Eczema [None]
